FAERS Safety Report 25105619 (Version 1)
Quarter: 2025Q1

REPORT INFORMATION
  Report Type: Spontaneous
  Country: US (occurrence: US)
  Receive Date: 20250321
  Receipt Date: 20250321
  Transmission Date: 20250408
  Serious: No
  Sender: ESPERION THERAPEUTICS
  Company Number: US-ESPERIONTHERAPEUTICS-2024USA01516

PATIENT
  Age: 77 Year
  Sex: Female

DRUGS (7)
  1. NEXLETOL [Suspect]
     Active Substance: BEMPEDOIC ACID
     Indication: Blood cholesterol increased
     Dosage: 180 MILLIGRAM, QD (IN THE MORNING WITH WATER)
     Route: 048
  2. NEXLETOL [Suspect]
     Active Substance: BEMPEDOIC ACID
     Indication: High density lipoprotein decreased
  3. LOSARTAN [Concomitant]
     Active Substance: LOSARTAN
     Route: 065
  4. AMLODIPINE [Concomitant]
     Active Substance: AMLODIPINE BESYLATE
     Route: 065
  5. AMLODIPINE [Concomitant]
     Active Substance: AMLODIPINE BESYLATE
     Route: 065
  6. ASPIRIN [Concomitant]
     Active Substance: ASPIRIN
     Route: 065
  7. Detox [Concomitant]
     Route: 065

REACTIONS (2)
  - Dyspnoea exertional [Recovered/Resolved]
  - Fatigue [Recovered/Resolved]
